FAERS Safety Report 5610750-7 (Version None)
Quarter: 2008Q1

REPORT INFORMATION
  Report Type: 
  Country: None (occurrence: None)
  Receive Date: 20080201
  Receipt Date: 20080123
  Transmission Date: 20080703
  Serious: Yes (Other)
  Sender: FDA-Public Use
  Company Number: PHNU2008DE00641

PATIENT
  Sex: Female

DRUGS (3)
  1. FEMARA [Suspect]
     Indication: BREAST CANCER METASTATIC
     Route: 048
     Dates: start: 20061201
  2. DECORTIN [Suspect]
     Indication: AUTOIMMUNE HEPATITIS
  3. DECORTIN [Suspect]
     Dosage: 5 MG, UNK

REACTIONS (5)
  - ASTHENIA [None]
  - AUTOIMMUNE HEPATITIS [None]
  - CONDITION AGGRAVATED [None]
  - DIZZINESS [None]
  - RESTLESSNESS [None]
